FAERS Safety Report 4601205-7 (Version None)
Quarter: 2005Q1

REPORT INFORMATION
  Report Type: 
  Country: None (occurrence: None)
  Receive Date: 20050304
  Receipt Date: 20050218
  Transmission Date: 20050727
  Serious: Yes (Hospitalization)
  Sender: FDA-Public Use
  Company Number: 2005US000101

PATIENT
  Sex: Female

DRUGS (1)
  1. ADENOSCAN [Suspect]
     Indication: SCAN MYOCARDIAL PERFUSION
     Dosage: UG/KG, TOTAL DOSE, INTRAVENOUS
     Route: 042

REACTIONS (3)
  - HYPOAESTHESIA [None]
  - MONOPARESIS [None]
  - NEUROLOGICAL SYMPTOM [None]
